FAERS Safety Report 16590562 (Version 1)
Quarter: 2019Q3

REPORT INFORMATION
  Report Type: Spontaneous
  Country: US (occurrence: US)
  Receive Date: 20190717
  Receipt Date: 20190717
  Transmission Date: 20191004
  Serious: Yes (Hospitalization)
  Sender: FDA-Public Use
  Company Number: None

PATIENT
  Age: 62 Year
  Sex: Female

DRUGS (24)
  1. METHOTREXATE. [Concomitant]
     Active Substance: METHOTREXATE
  2. BUMETANIDE. [Concomitant]
     Active Substance: BUMETANIDE
  3. CYCLOBENZAPR [Concomitant]
     Active Substance: CYCLOBENZAPRINE
  4. PLAQUENIL [Concomitant]
     Active Substance: HYDROXYCHLOROQUINE SULFATE
  5. VICTOZA [Concomitant]
     Active Substance: LIRAGLUTIDE
  6. ENALAPRIL [Concomitant]
     Active Substance: ENALAPRIL
  7. IPRATROPIUM [Concomitant]
     Active Substance: IPRATROPIUM
  8. AMLODIPINE [Concomitant]
     Active Substance: AMLODIPINE BESYLATE
  9. FOLIC ACID. [Concomitant]
     Active Substance: FOLIC ACID
  10. GABAPENTIN. [Concomitant]
     Active Substance: GABAPENTIN
  11. MAGNESIUM [Concomitant]
     Active Substance: MAGNESIUM
  12. OMEPRAZOLE. [Concomitant]
     Active Substance: OMEPRAZOLE
  13. ALBUTEROL. [Concomitant]
     Active Substance: ALBUTEROL
  14. CLOTRIM/BETA [Concomitant]
  15. FLUCONAZOLE. [Concomitant]
     Active Substance: FLUCONAZOLE
  16. OXYBUTYNIN. [Concomitant]
     Active Substance: OXYBUTYNIN CHLORIDE
  17. LANTUS [Concomitant]
     Active Substance: INSULIN GLARGINE
  18. ENBREL [Suspect]
     Active Substance: ETANERCEPT
     Indication: PSORIATIC ARTHROPATHY
     Dosage: ?          OTHER FREQUENCY:EVERY 7 DAYS;?
     Route: 058
     Dates: start: 20160513
  19. ATORVASTATIN [Concomitant]
     Active Substance: ATORVASTATIN
  20. TOPIRAMATE. [Concomitant]
     Active Substance: TOPIRAMATE
  21. VESICARE [Concomitant]
     Active Substance: SOLIFENACIN SUCCINATE
  22. HYDROXY [Concomitant]
  23. METFORMIN [Concomitant]
     Active Substance: METFORMIN HYDROCHLORIDE
  24. NEURONTIN [Concomitant]
     Active Substance: GABAPENTIN

REACTIONS (3)
  - Pneumonia [None]
  - Bronchitis [None]
  - Staphylococcus test positive [None]
